FAERS Safety Report 5133827-1 (Version None)
Quarter: 2006Q4

REPORT INFORMATION
  Report Type: 
  Country: None (occurrence: None)
  Receive Date: 20061018
  Receipt Date: 20061002
  Transmission Date: 20070319
  Serious: Yes (Death)
  Sender: FDA-Public Use
  Company Number: 2006000621

PATIENT
  Age: 24 Year
  Sex: 0

DRUGS (1)
  1. ROXANOL 100 [Suspect]

REACTIONS (1)
  - DEATH [None]
